FAERS Safety Report 9369814 (Version 2)
Quarter: 2013Q3

REPORT INFORMATION
  Report Type: Spontaneous
  Country: US (occurrence: US)
  Receive Date: 20130626
  Receipt Date: 20130814
  Transmission Date: 20140515
  Serious: Yes (Hospitalization)
  Sender: FDA-Public Use
  Company Number: US-PFIZER INC-2013189079

PATIENT
  Age: 84 Year
  Sex: Female

DRUGS (1)
  1. DEPO-MEDROL [Suspect]
     Indication: BACK PAIN
     Dosage: 40 MG, ONCE EVERY 3 WEEKS
     Route: 008
     Dates: start: 201306

REACTIONS (2)
  - Sepsis [Unknown]
  - Mental status changes [Unknown]
